FAERS Safety Report 25791049 (Version 1)
Quarter: 2025Q3

REPORT INFORMATION
  Report Type: Spontaneous
  Country: US (occurrence: None)
  Receive Date: 20250910
  Receipt Date: 20250910
  Transmission Date: 20251021
  Serious: Yes (Disabling)
  Sender: FDA-CTU
  Company Number: None

PATIENT
  Age: 49 Year
  Sex: Female
  Weight: 42.75 kg

DRUGS (1)
  1. HYDROXYCHLOROQUINE [Suspect]
     Active Substance: HYDROXYCHLOROQUINE
     Indication: Systemic lupus erythematosus
     Route: 048
     Dates: start: 20250606, end: 20250624

REACTIONS (13)
  - Tachycardia [None]
  - Dyspnoea [None]
  - Chest discomfort [None]
  - Abdominal pain upper [None]
  - Nausea [None]
  - Decreased appetite [None]
  - Diarrhoea [None]
  - Weight decreased [None]
  - Panic attack [None]
  - Anxiety [None]
  - Tachyphrenia [None]
  - Tinnitus [None]
  - Therapy cessation [None]

NARRATIVE: CASE EVENT DATE: 20250623
